FAERS Safety Report 20759562 (Version 1)
Quarter: 2022Q2

REPORT INFORMATION
  Report Type: Spontaneous
  Country: US (occurrence: US)
  Receive Date: 20220427
  Receipt Date: 20220427
  Transmission Date: 20220720
  Serious: No
  Sender: FDA-Public Use
  Company Number: US-BioHaven Pharmaceuticals-2022BHV000622

PATIENT

DRUGS (15)
  1. NURTEC ODT [Suspect]
     Active Substance: RIMEGEPANT SULFATE
     Indication: Migraine
     Route: 065
  2. NURTEC ODT [Suspect]
     Active Substance: RIMEGEPANT SULFATE
     Route: 065
  3. NURTEC ODT [Suspect]
     Active Substance: RIMEGEPANT SULFATE
     Route: 065
  4. NURTEC ODT [Suspect]
     Active Substance: RIMEGEPANT SULFATE
     Route: 065
  5. NURTEC ODT [Suspect]
     Active Substance: RIMEGEPANT SULFATE
     Route: 065
  6. RELPAX [Concomitant]
     Active Substance: ELETRIPTAN HYDROBROMIDE
     Indication: Migraine
     Dosage: ONLY RESCUE MEDICATION THAT WORKS RELIABLY FOR THE PATIENT WITHOUT SIDE EFFECTS
     Route: 065
  7. RELPAX [Concomitant]
     Active Substance: ELETRIPTAN HYDROBROMIDE
     Route: 065
  8. RELPAX [Concomitant]
     Active Substance: ELETRIPTAN HYDROBROMIDE
     Route: 065
  9. RELPAX [Concomitant]
     Active Substance: ELETRIPTAN HYDROBROMIDE
     Route: 065
  10. RELPAX [Concomitant]
     Active Substance: ELETRIPTAN HYDROBROMIDE
     Route: 065
  11. UBRELVY [Concomitant]
     Active Substance: UBROGEPANT
     Indication: Migraine
     Route: 065
  12. UBRELVY [Concomitant]
     Active Substance: UBROGEPANT
     Route: 065
  13. UBRELVY [Concomitant]
     Active Substance: UBROGEPANT
     Route: 065
  14. UBRELVY [Concomitant]
     Active Substance: UBROGEPANT
     Route: 065
  15. UBRELVY [Concomitant]
     Active Substance: UBROGEPANT
     Route: 065

REACTIONS (1)
  - Drug ineffective [Unknown]
